FAERS Safety Report 11117318 (Version 14)
Quarter: 2016Q2

REPORT INFORMATION
  Report Type: Report from Study
  Country: US (occurrence: US)
  Receive Date: 20150515
  Receipt Date: 20160617
  Transmission Date: 20160815
  Serious: Yes (Life-Threatening, Hospitalization, Other)
  Sender: FDA-Public Use
  Company Number: US-SA-2015SA045756

PATIENT
  Age: 51 Year
  Sex: Female

DRUGS (6)
  1. LEVOTHYROXINE. [Concomitant]
     Active Substance: LEVOTHYROXINE
     Indication: THYROID DISORDER
  2. LEMTRADA [Suspect]
     Active Substance: ALEMTUZUMAB
     Indication: MULTIPLE SCLEROSIS
     Route: 041
     Dates: start: 20150323, end: 20150327
  3. BACLOFEN. [Suspect]
     Active Substance: BACLOFEN
     Route: 065
  4. ACICLOVIR [Concomitant]
     Active Substance: ACYCLOVIR
  5. BACLOFEN. [Concomitant]
     Active Substance: BACLOFEN
     Indication: PAIN
  6. LEMTRADA [Suspect]
     Active Substance: ALEMTUZUMAB
     Indication: MULTIPLE SCLEROSIS
     Route: 041
     Dates: start: 20160426, end: 20160426

REACTIONS (45)
  - Pharyngeal oedema [Recovered/Resolved]
  - Dyspnoea [Recovered/Resolved]
  - Feeling abnormal [Recovered/Resolved]
  - Fear [Recovered/Resolved]
  - Muscular weakness [Recovered/Resolved]
  - Muscle spasms [Recovering/Resolving]
  - Condition aggravated [Recovering/Resolving]
  - Hypersensitivity [Recovering/Resolving]
  - Disease progression [Not Recovered/Not Resolved]
  - Swollen tongue [Recovered/Resolved]
  - Condition aggravated [Recovered/Resolved]
  - Arthralgia [Recovering/Resolving]
  - Dyspnoea [Unknown]
  - Multiple sclerosis [Unknown]
  - Vulvovaginal pruritus [Recovered/Resolved]
  - Micturition urgency [Recovering/Resolving]
  - Peripheral swelling [Recovered/Resolved]
  - Dysphagia [Recovered/Resolved]
  - Memory impairment [Not Recovered/Not Resolved]
  - Feeling abnormal [Recovering/Resolving]
  - Swollen tongue [Recovered/Resolved]
  - Swollen tongue [Recovering/Resolving]
  - Urinary tract infection [Recovered/Resolved]
  - Asthenia [Recovered/Resolved]
  - Weight increased [Unknown]
  - Myalgia [Not Recovered/Not Resolved]
  - Fatigue [Not Recovered/Not Resolved]
  - Hyperaesthesia [Not Recovered/Not Resolved]
  - Diarrhoea [Recovering/Resolving]
  - Unevaluable event [Unknown]
  - Speech disorder [Recovering/Resolving]
  - Nephrolithiasis [Not Recovered/Not Resolved]
  - Asthenia [Recovered/Resolved]
  - Seizure [Recovered/Resolved]
  - Frustration tolerance decreased [Unknown]
  - Joint swelling [Recovering/Resolving]
  - Dizziness [Recovered/Resolved]
  - Balance disorder [Recovered/Resolved]
  - Disorientation [Recovered/Resolved]
  - Chest pain [Recovered/Resolved]
  - Rash erythematous [Not Recovered/Not Resolved]
  - Urinary incontinence [Not Recovered/Not Resolved]
  - Bladder disorder [Not Recovered/Not Resolved]
  - Disturbance in attention [Recovered/Resolved]
  - Hypokinesia [Unknown]

NARRATIVE: CASE EVENT DATE: 2015
